FAERS Safety Report 13567867 (Version 1)
Quarter: 2017Q2

REPORT INFORMATION
  Report Type: Spontaneous
  Country: US (occurrence: US)
  Receive Date: 20170522
  Receipt Date: 20170522
  Transmission Date: 20170830
  Serious: Yes (Other)
  Sender: FDA-Public Use
  Company Number: US-JNJFOC-20170515630

PATIENT
  Age: 32 Year
  Sex: Male

DRUGS (3)
  1. MARIZOMIB [Concomitant]
     Active Substance: MARIZOMIB
  2. MARIZOMIB [Concomitant]
     Active Substance: MARIZOMIB
     Dosage: 0.55 MG/M2 OVER 10 MINUTES WEEKLY *3, CYCLE REPEATED EVERY 4 WEEKS FOR 2 CYCLES
     Dates: start: 201510
  3. DARATUMUMAB [Suspect]
     Active Substance: DARATUMUMAB
     Indication: PLASMA CELL MYELOMA
     Route: 065

REACTIONS (2)
  - Fracture [Unknown]
  - Neurological symptom [Unknown]

NARRATIVE: CASE EVENT DATE: 201604
